FAERS Safety Report 6237807-4 (Version None)
Quarter: 2009Q2

REPORT INFORMATION
  Report Type: 
  Country: None (occurrence: None)
  Receive Date: 20090617
  Receipt Date: 20090602
  Transmission Date: 20091009
  Serious: Yes (Hospitalization)
  Sender: FDA-Public Use
  Company Number: 8047584

PATIENT
  Age: 76 Year
  Sex: Male

DRUGS (13)
  1. KEPPRA [Suspect]
     Indication: EPILEPSY
     Dosage: 1 G /D PO
     Route: 048
     Dates: start: 20050101
  2. ERGENYL [Suspect]
     Indication: EPILEPSY
     Dosage: 900 MG /D PO
     Route: 048
     Dates: start: 20050725, end: 20090301
  3. NEXIUM [Concomitant]
  4. LEVOTHYROXINE SODIUM [Concomitant]
  5. ACETYLCYSTEIN AL [Concomitant]
  6. FOLACIN [Concomitant]
  7. DUROFERON [Concomitant]
  8. DIGOXIN [Concomitant]
  9. BETOLVEX [Concomitant]
  10. MADOPARK [Concomitant]
  11. TROMBYL [Concomitant]
  12. ALLOPURINOL NORDIC DRUGS [Concomitant]
  13. FURIX [Concomitant]

REACTIONS (6)
  - CEREBRAL ATROPHY [None]
  - CONVULSION [None]
  - DEMENTIA [None]
  - DISEASE PROGRESSION [None]
  - ENCEPHALOPATHY [None]
  - PARKINSON'S DISEASE [None]
